FAERS Safety Report 9805226 (Version 1)
Quarter: 2014Q1

REPORT INFORMATION
  Report Type: Spontaneous
  Country: US (occurrence: None)
  Receive Date: 20140107
  Receipt Date: 20140107
  Transmission Date: 20141002
  Serious: Yes (Hospitalization)
  Sender: FDA-Public Use
  Company Number: None

PATIENT
  Age: 71 Year
  Sex: Male
  Weight: 129.1 kg

DRUGS (3)
  1. DICLOFENAC [Suspect]
     Indication: PAIN
     Route: 048
     Dates: start: 20130827, end: 20130910
  2. DICLOFENAC [Suspect]
     Indication: INFLAMMATION
     Route: 048
     Dates: start: 20130827, end: 20130910
  3. DICLOFENAC [Suspect]
     Indication: CONTUSION
     Route: 048
     Dates: start: 20130827, end: 20130910

REACTIONS (3)
  - Renal failure acute [None]
  - Cardiac failure congestive [None]
  - General physical health deterioration [None]
